FAERS Safety Report 5222911-X (Version None)
Quarter: 2007Q1

REPORT INFORMATION
  Report Type: 
  Country: None (occurrence: None)
  Receive Date: 20070123
  Receipt Date: 20070115
  Transmission Date: 20070707
  Serious: Yes (Hospitalization)
  Sender: FDA-Public Use
  Company Number: HQWYE735217JAN07

PATIENT
  Age: 35 Year
  Sex: Female

DRUGS (4)
  1. EFFEXOR [Suspect]
     Dosage: OVERDOSE AMOUNT WAS 350 MG ORAL
     Route: 048
     Dates: start: 20040201, end: 20040201
  2. ALCOHOL (ETHANOL, ) [Suspect]
     Dosage: ORAL
     Route: 048
     Dates: start: 20040201, end: 20040201
  3. BROMAZEPAM (BROMAZEPAM, ) [Suspect]
     Dosage: OVERDOSE AMOUNT 180 MG ORAL
     Route: 048
     Dates: start: 20040201, end: 20040201
  4. NOCTRAN 10 (ACEPROAMZINE/ACEPROMETAZINE/CLORAZEPATE DIPOTASSIUM, ) [Suspect]
     Dosage: OVERDOSE AMOUNT WAS 10 MG ORAL
     Route: 048
     Dates: start: 20040201, end: 20040201

REACTIONS (2)
  - ALCOHOL POISONING [None]
  - MULTIPLE DRUG OVERDOSE [None]
